FAERS Safety Report 22173632 (Version 1)
Quarter: 2023Q2

REPORT INFORMATION
  Report Type: Spontaneous
  Country: CN (occurrence: CN)
  Receive Date: 20230404
  Receipt Date: 20230404
  Transmission Date: 20230721
  Serious: Yes (Hospitalization, Other)
  Sender: FDA-Public Use
  Company Number: CN-BAYER-2023A040079

PATIENT
  Age: 49 Year
  Sex: Female
  Weight: 51 kg

DRUGS (3)
  1. STIVARGA [Suspect]
     Active Substance: REGORAFENIB
     Indication: Symptomatic treatment
     Dosage: 120 MG, QD
     Route: 048
     Dates: start: 20230208, end: 20230220
  2. STIVARGA [Suspect]
     Active Substance: REGORAFENIB
     Indication: Symptomatic treatment
     Dosage: 120 MG, QD
     Route: 048
     Dates: start: 20230322, end: 20230322
  3. TISLELIZUMAB [Suspect]
     Active Substance: TISLELIZUMAB
     Dosage: 200 MG, Q3WK
     Route: 041
     Dates: start: 20230208, end: 20230220

REACTIONS (8)
  - Drug hypersensitivity [Not Recovered/Not Resolved]
  - Pyrexia [Recovered/Resolved]
  - Pyrexia [Recovered/Resolved]
  - Rash [Recovered/Resolved]
  - Flushing [Not Recovered/Not Resolved]
  - Rash pruritic [Not Recovered/Not Resolved]
  - Sepsis [None]
  - Off label use [None]

NARRATIVE: CASE EVENT DATE: 20230208
